FAERS Safety Report 15916163 (Version 7)
Quarter: 2019Q2

REPORT INFORMATION
  Report Type: Spontaneous
  Country: JP (occurrence: JP)
  Receive Date: 20190204
  Receipt Date: 20190531
  Transmission Date: 20190711
  Serious: Yes (Other)
  Sender: FDA-Public Use
  Company Number: PHHY2019JP022132

PATIENT
  Age: 57 Year
  Sex: Female

DRUGS (4)
  1. TRABECTEDIN [Suspect]
     Active Substance: TRABECTEDIN
     Indication: UTERINE LEIOMYOSARCOMA
     Dosage: 1.2 MG/M2, TIW
     Route: 065
  2. GEMCITABINE [Suspect]
     Active Substance: GEMCITABINE\GEMCITABINE HYDROCHLORIDE
     Indication: UTERINE LEIOMYOSARCOMA
     Dosage: 1000 MG/M2, UNK
     Route: 042
  3. VOTRIENT [Suspect]
     Active Substance: PAZOPANIB HYDROCHLORIDE
     Indication: UTERINE LEIOMYOSARCOMA
     Dosage: 800 MG, QD
     Route: 048
  4. DOCETAXEL. [Suspect]
     Active Substance: DOCETAXEL
     Indication: UTERINE LEIOMYOSARCOMA
     Dosage: 70 MG/M2, UNK
     Route: 065

REACTIONS (11)
  - Proteinuria [Unknown]
  - Malignant neoplasm progression [Unknown]
  - Oedema [Unknown]
  - Liver injury [Unknown]
  - Anaemia [Unknown]
  - Uterine leiomyosarcoma [Unknown]
  - Neutropenia [Unknown]
  - Thrombocytopenia [Unknown]
  - Haematuria [Unknown]
  - Hypoalbuminaemia [Unknown]
  - Hypertension [Unknown]
